FAERS Safety Report 6848097-3 (Version None)
Quarter: 2010Q3

REPORT INFORMATION
  Report Type: 
  Country: None (occurrence: None)
  Receive Date: 20100716
  Receipt Date: 20100709
  Transmission Date: 20110219
  Serious: Yes (Hospitalization)
  Sender: FDA-Public Use
  Company Number: A0863780A

PATIENT
  Sex: Male

DRUGS (13)
  1. ADVAIR DISKUS 100/50 [Suspect]
     Indication: CHRONIC OBSTRUCTIVE PULMONARY DISEASE
     Dosage: 1PUFF TWICE PER DAY
     Route: 055
     Dates: start: 20060101
  2. WELLBUTRIN [Suspect]
     Route: 065
  3. SIMVASTATIN [Concomitant]
  4. PRISTIQ [Concomitant]
  5. CARDIZEM [Concomitant]
  6. SENNA [Concomitant]
  7. GLIMEPIRIDE [Concomitant]
  8. LASIX [Concomitant]
  9. VENTOLIN [Concomitant]
  10. COUMADIN [Concomitant]
  11. DIGOXIN [Concomitant]
  12. MULTI-VITAMIN [Concomitant]
  13. SPIRIVA [Concomitant]

REACTIONS (3)
  - CATARACT [None]
  - CATARACT OPERATION [None]
  - PNEUMONIA [None]
